FAERS Safety Report 5129419-0 (Version None)
Quarter: 2006Q4

REPORT INFORMATION
  Report Type: 
  Country: None (occurrence: None)
  Receive Date: 20061012
  Receipt Date: 20061004
  Transmission Date: 20070319
  Serious: Yes (Other)
  Sender: FDA-Public Use
  Company Number: 2006123243

PATIENT
  Age: 39 Year
  Sex: Female

DRUGS (2)
  1. VIRACEPT [Suspect]
     Indication: HIV INFECTION
     Dosage: 2500 MG, ORAL
     Route: 048
     Dates: start: 20060120
  2. COMBIVIR [Suspect]
     Indication: HIV INFECTION
     Dosage: 2 TABS OR CAPSULES, ORAL
     Route: 048
     Dates: start: 20060120

REACTIONS (4)
  - DRUG EXPOSURE DURING PREGNANCY [None]
  - HYPERTENSION [None]
  - PREMATURE SEPARATION OF PLACENTA [None]
  - STILLBIRTH [None]
